FAERS Safety Report 14236453 (Version 5)
Quarter: 2018Q1

REPORT INFORMATION
  Report Type: Spontaneous
  Country: US (occurrence: US)
  Receive Date: 20171129
  Receipt Date: 20180214
  Transmission Date: 20180508
  Serious: Yes (Hospitalization)
  Sender: FDA-Public Use
  Company Number: US-PFIZER INC-2016563965

PATIENT
  Age: 84 Year
  Sex: Female
  Weight: 53.5 kg

DRUGS (19)
  1. ALPRAZOLAM. [Concomitant]
     Active Substance: ALPRAZOLAM
     Dosage: 0.125 MG, AS NEEDED (TAKE 1/2 TAB BY PRESCRIPTION/REFILLS MOUTH TWISE A DAY)
     Route: 048
     Dates: start: 20130315
  2. ASPIRIN. [Concomitant]
     Active Substance: ASPIRIN
     Dosage: 325 MG, 1X/DAY
     Route: 048
     Dates: start: 20160606
  3. CELEBREX [Suspect]
     Active Substance: CELECOXIB
     Indication: ARTHRITIS
     Dosage: 200 MG, 1X/DAY
     Route: 048
     Dates: start: 20120313
  4. GAS-X MAX STRENGTH [Concomitant]
     Dosage: UNK UNK, AS NEEDED
     Dates: start: 20160606
  5. FLONASE [Concomitant]
     Active Substance: FLUTICASONE PROPIONATE
     Indication: HYPERSENSITIVITY
     Dosage: 1 TO 2 SPRAYS IN EACH NOSTRIL
     Route: 045
     Dates: start: 20160811
  6. COZAAR [Concomitant]
     Active Substance: LOSARTAN POTASSIUM
     Dosage: 50 MG, 1X/DAY
     Route: 048
     Dates: start: 20150522
  7. NAFTIN [Concomitant]
     Active Substance: NAFTIFINE HYDROCHLORIDE
     Dosage: UNK UNK, 2X/DAY (APPLY TO FACE BID)
     Dates: start: 20150507
  8. PREDNISONE. [Concomitant]
     Active Substance: PREDNISONE
     Dosage: 10 MG, 1X/DAY (TAKE 2 TABLETS)
     Route: 048
     Dates: start: 20160909
  9. SYNTHROID [Concomitant]
     Active Substance: LEVOTHYROXINE SODIUM
     Dosage: 75 UG, 1X/DAY
     Route: 048
     Dates: start: 20120301
  10. HYDROCHLOROTHIAZIDE. [Concomitant]
     Active Substance: HYDROCHLOROTHIAZIDE
     Dosage: 12.5 MG, 2X/DAY
     Route: 048
     Dates: start: 20150923
  11. GABAPENTIN. [Concomitant]
     Active Substance: GABAPENTIN
     Dosage: 100 MG, 2X/DAY
     Route: 048
     Dates: start: 20160606
  12. ZOFRAN [Concomitant]
     Active Substance: ONDANSETRON HYDROCHLORIDE
     Dosage: 8 MG, 1X/DAY (1 UNDER THE TONGUE ONCE A DAY)
     Route: 060
     Dates: start: 20160801
  13. LOMOTIL [Concomitant]
     Active Substance: ATROPINE SULFATE\DIPHENOXYLATE HYDROCHLORIDE
     Indication: DIARRHOEA
     Dosage: UNK UNK, AS NEEDED (ONCE A DAY WHEN NECESSARY)
     Dates: start: 20140703
  14. TRAMADOL HCL CF [Concomitant]
     Dosage: 50 MG, UNK
     Route: 048
     Dates: start: 20150528
  15. CELEBREX [Suspect]
     Active Substance: CELECOXIB
     Indication: PAIN
     Dosage: UNK
  16. METHYLDOPA. [Concomitant]
     Active Substance: METHYLDOPA
     Dosage: 250 MG, 4X/DAY
     Route: 048
     Dates: start: 20150528
  17. XANAX [Concomitant]
     Active Substance: ALPRAZOLAM
     Dosage: 0.125 MG, 2X/DAY (1/2 TAB TWICE A DAY )
     Route: 048
     Dates: start: 20160606
  18. RETIN-A [Concomitant]
     Active Substance: TRETINOIN
     Dosage: UNK UNK, DAILY (APPLY THIN LAYER TO AFFECTED AREA DAILY)
     Dates: start: 20140401
  19. PREMARIN [Concomitant]
     Active Substance: ESTROGENS, CONJUGATED
     Dosage: 1.25 MG, 1X/DAY
     Route: 048
     Dates: start: 20150522

REACTIONS (10)
  - Urinary tract infection [Unknown]
  - Muscular weakness [Not Recovered/Not Resolved]
  - Fall [Not Recovered/Not Resolved]
  - Drug dose omission [Unknown]
  - Asthenia [Unknown]
  - Systemic lupus erythematosus [Unknown]
  - Gait disturbance [Unknown]
  - Intentional product misuse [Unknown]
  - Dysstasia [Unknown]
  - Hypoaesthesia [Unknown]
